FAERS Safety Report 18328317 (Version 3)
Quarter: 2020Q4

REPORT INFORMATION
  Report Type: Report from Study
  Country: CA (occurrence: CA)
  Receive Date: 20200930
  Receipt Date: 20201209
  Transmission Date: 20210113
  Serious: Yes (Hospitalization, Other)
  Sender: FDA-Public Use
  Company Number: CA-ULTRAGENYX PHARMACEUTICAL INC.-CA-UGNX-20-00185

PATIENT
  Weight: 31.2 kg

DRUGS (3)
  1. TRIHEPTANOIN. [Suspect]
     Active Substance: TRIHEPTANOIN
     Indication: VERY LONG-CHAIN ACYL-COENZYME A DEHYDROGENASE DEFICIENCY
     Dosage: 2.8 G/DOSE
     Dates: start: 20170518
  2. TRIHEPTANOIN. [Suspect]
     Active Substance: TRIHEPTANOIN
     Dosage: UX007 WAS INTERRUPTED
     Dates: end: 20200915
  3. TRIHEPTANOIN. [Suspect]
     Active Substance: TRIHEPTANOIN
     Dosage: RE-INTRODUCED
     Dates: start: 20200918

REACTIONS (2)
  - Rhabdomyolysis [Recovered/Resolved]
  - Product dose omission issue [Recovered/Resolved]

NARRATIVE: CASE EVENT DATE: 20200915
